FAERS Safety Report 4578563-5 (Version None)
Quarter: 2005Q1

REPORT INFORMATION
  Report Type: 
  Country: None (occurrence: None)
  Receive Date: 20050204
  Receipt Date: 20050204
  Transmission Date: 20050727
  Serious: Yes (Life-Threatening, Hospitalization)
  Sender: FDA-Public Use
  Company Number: None

PATIENT
  Age: 3 Month
  Sex: Male
  Weight: 2.268 kg

DRUGS (6)
  1. SYNAGIS [Suspect]
     Indication: PROPHYLAXIS
     Dosage: 0.4 ML   MONTHLY  INTRAMUSCU
     Route: 030
     Dates: start: 20050204, end: 20050205
  2. SYNAGIS [Suspect]
     Indication: RESPIRATORY SYNCYTIAL VIRUS INFECTION
     Dosage: 0.4 ML   MONTHLY  INTRAMUSCU
     Route: 030
     Dates: start: 20050204, end: 20050205
  3. TAGAMET [Concomitant]
  4. REGLAN [Concomitant]
  5. IRON [Concomitant]
  6. MULTIVITAMIN [Concomitant]

REACTIONS (5)
  - APNOEA [None]
  - CYANOSIS [None]
  - FEELING COLD [None]
  - MALAISE [None]
  - VIRAL INFECTION [None]
